FAERS Safety Report 7431858-X (Version None)
Quarter: 2011Q2

REPORT INFORMATION
  Report Type: 
  Country: None (occurrence: None)
  Receive Date: 20110422
  Receipt Date: 20110412
  Transmission Date: 20111010
  Serious: Yes (Other)
  Sender: FDA-Public Use
  Company Number: US-ELI_LILLY_AND_COMPANY-US201101005644

PATIENT
  Sex: Female

DRUGS (3)
  1. FORTEO [Suspect]
     Indication: OSTEOPOROSIS
     Dosage: 20 UG, DAILY (1/D)
     Dates: start: 20101201
  2. FORTEO [Suspect]
     Dosage: 20 UG, DAILY (1/D)
  3. FORTEO [Suspect]
     Dosage: 20 UG, QD

REACTIONS (8)
  - NAUSEA [None]
  - ARTHRALGIA [None]
  - POSTMENOPAUSAL HAEMORRHAGE [None]
  - WEIGHT DECREASED [None]
  - INJECTION SITE PAIN [None]
  - MUSCLE SPASMS [None]
  - BONE PAIN [None]
  - MYALGIA [None]
